FAERS Safety Report 16208002 (Version 1)
Quarter: 2019Q2

REPORT INFORMATION
  Report Type: Spontaneous
  Country: US (occurrence: US)
  Receive Date: 20190417
  Receipt Date: 20190417
  Transmission Date: 20190711
  Serious: Yes (Hospitalization)
  Sender: FDA-Public Use
  Company Number: US-ASTRAZENECA-2019SE57034

PATIENT
  Age: 27160 Day
  Sex: Female
  Weight: 46.7 kg

DRUGS (1)
  1. BRILINTA [Suspect]
     Active Substance: TICAGRELOR
     Indication: STENT PLACEMENT
     Route: 048
     Dates: start: 201809

REACTIONS (7)
  - Weight decreased [Unknown]
  - Contusion [Unknown]
  - Feeling abnormal [Unknown]
  - Vascular occlusion [Unknown]
  - Appetite disorder [Unknown]
  - Memory impairment [Unknown]
  - Haemorrhage [Not Recovered/Not Resolved]

NARRATIVE: CASE EVENT DATE: 20190409
